FAERS Safety Report 10094356 (Version 1)
Quarter: 2014Q2

REPORT INFORMATION
  Report Type: Spontaneous
  Country: US (occurrence: None)
  Receive Date: 20140421
  Receipt Date: 20140421
  Transmission Date: 20141212
  Serious: No
  Sender: FDA-Public Use
  Company Number: None

PATIENT
  Age: 40 Year
  Sex: Female
  Weight: 53.07 kg

DRUGS (1)
  1. MIRVASO 5MG GALDERMA [Suspect]
     Indication: ROSACEA
     Dosage: PEA SIZED AMOUNT ONCE DAILY APPLIED TO A SURFACE, USUALLY THE SKIN
     Route: 061
     Dates: start: 20140409, end: 20140418

REACTIONS (3)
  - Flushing [None]
  - Skin burning sensation [None]
  - Skin warm [None]
